FAERS Safety Report 5247712-8 (Version None)
Quarter: 2007Q1

REPORT INFORMATION
  Report Type: 
  Country: None (occurrence: None)
  Receive Date: 20070227
  Receipt Date: 20070220
  Transmission Date: 20070707
  Serious: Yes (Hospitalization)
  Sender: FDA-Public Use
  Company Number: US-ELI_LILLY_AND_COMPANY-US200702004115

PATIENT
  Age: 69 Year
  Sex: Male

DRUGS (7)
  1. HUMALOG [Suspect]
     Indication: DIABETES MELLITUS
  2. BYETTA [Concomitant]
     Indication: DIABETES MELLITUS
     Dosage: UNK, AS NEEDED
  3. LANTUS [Concomitant]
     Indication: DIABETES MELLITUS
     Dosage: 75 U, DAILY (1/D)
  4. VASOTEC [Concomitant]
  5. TENORMIN [Concomitant]
     Indication: HYPERTENSION
     Dosage: 100 MG, UNK
  6. LASIX [Concomitant]
  7. HYDROCHLOROTHIAZIDE [Concomitant]

REACTIONS (1)
  - INTESTINAL PERFORATION [None]
